FAERS Safety Report 25527203 (Version 1)
Quarter: 2025Q3

REPORT INFORMATION
  Report Type: Spontaneous
  Country: EU (occurrence: EU)
  Receive Date: 20250708
  Receipt Date: 20250708
  Transmission Date: 20251020
  Serious: Yes (Life-Threatening, Hospitalization)
  Sender: ACCORD
  Company Number: EU-Accord-493542

PATIENT
  Age: 65 Year
  Sex: Male

DRUGS (6)
  1. OXALIPLATIN [Suspect]
     Active Substance: OXALIPLATIN
     Indication: Rectal adenocarcinoma
     Dosage: AT 2-HOUR INTRAVENOUS INFUSION ON DAY 1
     Dates: start: 20230918
  2. XELODA [Suspect]
     Active Substance: CAPECITABINE
     Indication: Rectal adenocarcinoma
     Dosage: EVERYDAY DOSE OF 1000 MG/M2, WHICH MEANS A PATIENT DAILY DOSE OF
     Dates: start: 20230918
  3. XELODA [Suspect]
     Active Substance: CAPECITABINE
     Indication: Adenocarcinoma of colon
     Dosage: EVERYDAY DOSE OF 1000 MG/M2, WHICH MEANS A PATIENT DAILY DOSE OF 4000
     Dates: start: 20230918
  4. XELODA [Suspect]
     Active Substance: CAPECITABINE
     Indication: Colon cancer stage III
     Dosage: EVERYDAY DOSE OF 1000 MG/M2, WHICH MEANS A PATIENT DAILY DOSE OF
     Dates: start: 20230918
  5. OXALIPLATIN [Suspect]
     Active Substance: OXALIPLATIN
     Indication: Colon cancer stage III
     Dosage: AT 2-HOUR INTRAVENOUS INFUSION ON DAY 1
     Dates: start: 20230918
  6. OXALIPLATIN [Suspect]
     Active Substance: OXALIPLATIN
     Indication: Adenocarcinoma of colon
     Dosage: AT 2-HOUR INTRAVENOUS INFUSION ON DAY 1
     Dates: start: 20230918

REACTIONS (6)
  - Acute myocardial infarction [Recovered/Resolved]
  - Arteriospasm coronary [Recovered/Resolved]
  - Atrial fibrillation [Recovered/Resolved]
  - Left ventricular dysfunction [Recovered/Resolved]
  - Ventricular arrhythmia [Recovered/Resolved]
  - Cardiac arrest [Recovered/Resolved]

NARRATIVE: CASE EVENT DATE: 20230901
